FAERS Safety Report 9602590 (Version 4)
Quarter: 2014Q3

REPORT INFORMATION
  Report Type: Spontaneous
  Country: US (occurrence: US)
  Receive Date: 20131007
  Receipt Date: 20140702
  Transmission Date: 20150326
  Serious: Yes (Life-Threatening, Hospitalization)
  Sender: FDA-Public Use
  Company Number: US-BAYER-2013-119976

PATIENT
  Age: 21 Year
  Sex: Female
  Weight: 121.54 kg

DRUGS (1)
  1. MIRENA [Suspect]
     Active Substance: LEVONORGESTREL
     Indication: CONTRACEPTION
     Dosage: 20 MCG/24HR, CONT
     Route: 015
     Dates: start: 20120119, end: 20130603

REACTIONS (18)
  - Pelvic haemorrhage [None]
  - Activities of daily living impaired [None]
  - Ruptured ectopic pregnancy [None]
  - Anxiety [None]
  - Mobility decreased [None]
  - Ectopic pregnancy with contraceptive device [None]
  - Drug ineffective [None]
  - Uterine perforation [None]
  - Abdominal pain lower [None]
  - Depression [None]
  - Vaginal haemorrhage [None]
  - General physical health deterioration [None]
  - Device issue [None]
  - Injury [None]
  - Pain [None]
  - Anhedonia [None]
  - Emotional distress [None]
  - Cough [None]

NARRATIVE: CASE EVENT DATE: 2013
